FAERS Safety Report 6732972-4 (Version None)
Quarter: 2010Q2

REPORT INFORMATION
  Report Type: 
  Country: None (occurrence: None)
  Receive Date: 20100517
  Receipt Date: 20100430
  Transmission Date: 20101027
  Serious: Yes (Other)
  Sender: FDA-Public Use
  Company Number: US-1181756

PATIENT
  Sex: Female

DRUGS (1)
  1. .SYSTANE EYE DROPS [Suspect]
     Indication: DRY EYE
     Dosage: OPHTHALMIC
     Route: 047
     Dates: start: 20091101, end: 20100202

REACTIONS (3)
  - CONDITION AGGRAVATED [None]
  - EYE HAEMORRHAGE [None]
  - EYE INFECTION [None]
